FAERS Safety Report 24106350 (Version 1)
Quarter: 2024Q3

REPORT INFORMATION
  Report Type: Spontaneous
  Country: US (occurrence: US)
  Receive Date: 20240717
  Receipt Date: 20240717
  Transmission Date: 20241017
  Serious: No
  Sender: Phathom Pharmaceuticals
  Company Number: US-PHATHOM PHARMACEUTICALS INC.-2024PHT00372

PATIENT
  Age: 28 Year
  Sex: Male

DRUGS (3)
  1. VOQUEZNA [Suspect]
     Active Substance: VONOPRAZAN FUMARATE
     Dosage: 20 MG, 1X/DAY
     Route: 048
     Dates: start: 20240520, end: 20240525
  2. ZYRTEC [Concomitant]
     Active Substance: CETIRIZINE HYDROCHLORIDE
     Dosage: UNK, AS NEEDED
  3. MYLANTA [CALCIUM CARBONATE;MAGNESIUM HYDROXIDE;SIMETICONE] [Concomitant]
     Dosage: UNK, AS NEEDED

REACTIONS (4)
  - Paraesthesia oral [Unknown]
  - Oral disorder [Unknown]
  - Throat tightness [Unknown]
  - Paranoia [Unknown]

NARRATIVE: CASE EVENT DATE: 20240501
